FAERS Safety Report 21756561 (Version 1)
Quarter: 2022Q4

REPORT INFORMATION
  Report Type: Spontaneous
  Country: US (occurrence: US)
  Receive Date: 20221220
  Receipt Date: 20221220
  Transmission Date: 20230113
  Serious: No
  Sender: FDA-Public Use
  Company Number: US-ABBVIE-4198949

PATIENT

DRUGS (1)
  1. SKYRIZI [Suspect]
     Active Substance: RISANKIZUMAB-RZAA
     Indication: Crohn^s disease
     Dosage: FIRST ADMIN DATE:2022
     Route: 058

REACTIONS (10)
  - Local reaction [Unknown]
  - Rash [Unknown]
  - Urticaria [Unknown]
  - Therapeutic product effect incomplete [Unknown]
  - Dry skin [Unknown]
  - Postural orthostatic tachycardia syndrome [Unknown]
  - Injection site urticaria [Unknown]
  - Ehlers-Danlos syndrome [Unknown]
  - Mast cell activation syndrome [Unknown]
  - Seasonal allergy [Unknown]
